FAERS Safety Report 6553447-1 (Version None)
Quarter: 2010Q1

REPORT INFORMATION
  Report Type: 
  Country: None (occurrence: None)
  Receive Date: 20100122
  Receipt Date: 20100106
  Transmission Date: 20100710
  Serious: Yes (Hospitalization)
  Sender: FDA-Public Use
  Company Number: 2010AC000030

PATIENT
  Sex: Female

DRUGS (29)
  1. DIGOXIN [Suspect]
     Dosage: .25 MG;QD;PO
     Route: 048
     Dates: start: 20000101, end: 20090203
  2. DIOVAN [Concomitant]
  3. SIMVASTATIN [Concomitant]
  4. INSULIN [Concomitant]
  5. TRIAMTERENE [Concomitant]
  6. ATENOLOL [Concomitant]
  7. OMEPRAZOLE [Concomitant]
  8. SERTRALINE HCL [Concomitant]
  9. ZOLOFT [Concomitant]
  10. DIOVAN [Concomitant]
  11. DYAZIDE [Concomitant]
  12. CIPROFLAXACIN [Concomitant]
  13. NYSTATIN [Concomitant]
  14. VYTORIN [Concomitant]
  15. NITROFURANTOIN [Concomitant]
  16. CYCLOBENZAPRINE [Concomitant]
  17. CLOBETASOL PROPIONATE [Concomitant]
  18. CLINDAGEL [Concomitant]
  19. ALPRAZOLAM [Concomitant]
  20. PRILOSEC [Concomitant]
  21. ACIPHEX [Concomitant]
  22. EPIPEN [Concomitant]
  23. MECLIZINE [Concomitant]
  24. METROGEL [Concomitant]
  25. PROPOXYPHENE [Concomitant]
  26. PROTONIX [Concomitant]
  27. BELLADONA [Concomitant]
  28. PHENOBARBITAL TAB [Concomitant]
  29. AMBIEN [Concomitant]

REACTIONS (4)
  - ECONOMIC PROBLEM [None]
  - EMOTIONAL DISTRESS [None]
  - INJURY [None]
  - PAIN [None]
